FAERS Safety Report 7945493-8 (Version None)
Quarter: 2011Q4

REPORT INFORMATION
  Report Type: 
  Country: None (occurrence: None)
  Receive Date: 20111125
  Receipt Date: 20111111
  Transmission Date: 20120403
  Serious: Yes (Hospitalization)
  Sender: FDA-Public Use
  Company Number: 11-001274

PATIENT
  Age: 73 Year
  Sex: Female

DRUGS (8)
  1. CICLESONIDE (CICLESONIDE) [Concomitant]
  2. XETRONIDAZOLE (METRONIDAZOLE) [Concomitant]
  3. ESTRADIOL [Concomitant]
  4. TERBUTALINE SULFATE [Concomitant]
  5. EFORMOTEROL FUMARATE (FORMOTEROL FUMARATE) [Concomitant]
  6. ESOMEPRAZOLE MAGNESIUM [Concomitant]
  7. AMOXICILLIN W/CLAVULANATE POTASSIUM (AMOXICILLIN, CLAVULANATE POTASSIU [Suspect]
     Dates: start: 20110806, end: 20110815
  8. DORYX [Suspect]
     Dosage: 100 MG, UNK, ORAL
     Route: 048
     Dates: start: 20110815

REACTIONS (8)
  - MALAISE [None]
  - ANGIOEDEMA [None]
  - VASCULITIS [None]
  - LEUKOCYTOCLASTIC VASCULITIS [None]
  - BURNING SENSATION [None]
  - DYSPNOEA [None]
  - ECCHYMOSIS [None]
  - FEELING HOT [None]
